FAERS Safety Report 6819839-8 (Version None)
Quarter: 2010Q3

REPORT INFORMATION
  Report Type: 
  Country: None (occurrence: None)
  Receive Date: 20100707
  Receipt Date: 20100628
  Transmission Date: 20110219
  Serious: Yes (Hospitalization, Other)
  Sender: FDA-Public Use
  Company Number: US-JNJFOC-20100406691

PATIENT
  Sex: Male

DRUGS (1)
  1. LEVAQUIN [Suspect]
     Indication: PROSTATITIS
     Route: 048

REACTIONS (7)
  - BACK INJURY [None]
  - DEEP VEIN THROMBOSIS [None]
  - LIGAMENT RUPTURE [None]
  - MENISCUS LESION [None]
  - PULMONARY EMBOLISM [None]
  - TENDON RUPTURE [None]
  - TENDONITIS [None]
